FAERS Safety Report 9938589 (Version 1)
Quarter: 2014Q1

REPORT INFORMATION
  Report Type: Report from Study
  Country: US (occurrence: US)
  Receive Date: 20140303
  Receipt Date: 20140303
  Transmission Date: 20141002
  Serious: Yes (Other)
  Sender: FDA-Public Use
  Company Number: US-ROCHE-1331427

PATIENT
  Sex: Male

DRUGS (4)
  1. LUCENTIS [Suspect]
     Indication: RETINAL DEGENERATION
     Route: 050
  2. BETADINE [Concomitant]
     Route: 061
  3. XYLOCAINE [Concomitant]
     Route: 065
  4. POLYTRIM [Concomitant]
     Dosage: TO AFFECTED EYE X4 DAYS
     Route: 047

REACTIONS (5)
  - Blindness [Unknown]
  - Chorioretinal atrophy [Unknown]
  - Vitreous floaters [Unknown]
  - Pain [Unknown]
  - Visual field defect [Unknown]
